FAERS Safety Report 18970488 (Version 2)
Quarter: 2022Q1

REPORT INFORMATION
  Report Type: Spontaneous
  Country: US (occurrence: US)
  Receive Date: 20210304
  Receipt Date: 20220308
  Transmission Date: 20220424
  Serious: No
  Sender: FDA-Public Use
  Company Number: US-HARMONY BIOSCIENCES-2020HMY01956

PATIENT
  Age: 37 Year
  Sex: Female
  Weight: 56.599 kg

DRUGS (13)
  1. WAKIX [Suspect]
     Active Substance: PITOLISANT HYDROCHLORIDE
     Indication: Narcolepsy
     Dosage: 17.8 MG, 1X/DAY
     Route: 048
     Dates: start: 20201120
  2. PROZAC [Concomitant]
     Active Substance: FLUOXETINE HYDROCHLORIDE
     Dosage: 60 MG, 1X/DAY
  3. DAYTRANA [Concomitant]
     Active Substance: METHYLPHENIDATE
     Dosage: 20 MG, 1X/DAY
  4. ZALEPLON [Concomitant]
     Active Substance: ZALEPLON
  5. VYVANSE [Concomitant]
     Active Substance: LISDEXAMFETAMINE DIMESYLATE
  6. BACLOFEN [Concomitant]
     Active Substance: BACLOFEN
  7. ARMOUR THYROID [Concomitant]
     Active Substance: THYROID, PORCINE
  8. ZYRTEC [Concomitant]
     Active Substance: CETIRIZINE HYDROCHLORIDE
  9. IRON [Concomitant]
     Active Substance: IRON
     Dosage: 65 MG, 1X/DAY
  10. VITAMIN D [Concomitant]
     Active Substance: VITAMIN D NOS
     Dosage: 50000 IU, 1X/WEEK
  11. IMMUNE SUPPORT [Concomitant]
  12. PROBIOTIC 10B CELL [Concomitant]
  13. VITAMIN D2 [Concomitant]
     Active Substance: ERGOCALCIFEROL

REACTIONS (12)
  - Nasopharyngitis [Not Recovered/Not Resolved]
  - Dry eye [Not Recovered/Not Resolved]
  - Nasal dryness [Not Recovered/Not Resolved]
  - Dry throat [Not Recovered/Not Resolved]
  - Pain of skin [Not Recovered/Not Resolved]
  - Malaise [Not Recovered/Not Resolved]
  - COVID-19 [Unknown]
  - Nasal congestion [Not Recovered/Not Resolved]
  - Fatigue [Not Recovered/Not Resolved]
  - Pain [Not Recovered/Not Resolved]
  - Therapeutic product effect delayed [Not Recovered/Not Resolved]
  - Depression [Not Recovered/Not Resolved]

NARRATIVE: CASE EVENT DATE: 20201122
